FAERS Safety Report 25800451 (Version 3)
Quarter: 2025Q4

REPORT INFORMATION
  Report Type: Other
  Country: GB (occurrence: GB)
  Receive Date: 20250915
  Receipt Date: 20251105
  Transmission Date: 20260118
  Serious: Yes (Other)
  Sender: ASPEN
  Company Number: GB-STEMLINE THERAPEUTICS, INC-2025-STML-GB003090

PATIENT

DRUGS (13)
  1. DEXAMETHASONE [Suspect]
     Active Substance: DEXAMETHASONE
     Indication: Plasma cell myeloma
     Dosage: UNK UNK, 1 DOSE WEEKLY
     Route: 065
     Dates: start: 20240205
  2. DEXAMETHASONE [Suspect]
     Active Substance: DEXAMETHASONE
     Dosage: UNK (DOSE REDUCED)
     Route: 065
  3. DEXAMETHASONE [Suspect]
     Active Substance: DEXAMETHASONE
     Dosage: UNK UNK, 1 DOSE WEEKLY/ UNK UNK, 2/WEEK (DOSE REDUCED))
     Route: 065
     Dates: start: 20250122
  4. DEXAMETHASONE [Suspect]
     Active Substance: DEXAMETHASONE
     Dosage: UNK UNK, 2/WEEK
     Route: 065
     Dates: start: 20241205
  5. DEXAMETHASONE [Suspect]
     Active Substance: DEXAMETHASONE
     Dosage: UNK UNK, 2/WEEK (D1,2 8,9 15,16, 22,23 AND 29,30)
     Dates: start: 20241205
  6. SELINEXOR [Suspect]
     Active Substance: SELINEXOR
     Indication: Plasma cell myeloma
     Dosage: 100 MG, 1/WEEK
     Route: 048
     Dates: start: 20241204, end: 20241204
  7. SELINEXOR [Suspect]
     Active Substance: SELINEXOR
     Dosage: UNK (DOSE REDUCED)
     Route: 048
     Dates: start: 20250122
  8. SELINEXOR [Suspect]
     Active Substance: SELINEXOR
     Dosage: 80 MILLIGRAM
     Route: 048
     Dates: start: 20241219
  9. SELINEXOR [Suspect]
     Active Substance: SELINEXOR
     Dosage: 60 MILLIGRAM
     Route: 048
     Dates: start: 20250115
  10. SELINEXOR [Suspect]
     Active Substance: SELINEXOR
     Dosage: 40 MILLIGRAM, QD
     Route: 048
     Dates: start: 20250122
  11. VELCADE [Suspect]
     Active Substance: BORTEZOMIB
     Indication: Plasma cell myeloma
     Dosage: 1 MG/M2
     Route: 065
     Dates: start: 20241205
  12. VELCADE [Suspect]
     Active Substance: BORTEZOMIB
     Dosage: UNK (DOSE REDUCED)
     Route: 065
  13. VELCADE [Suspect]
     Active Substance: BORTEZOMIB
     Dosage: 0.7 MILLIGRAM PER SQUARE METRE/0.7 MG/M2 (CYCLE 2 DAY 8 ONWARDS)
     Route: 065
     Dates: start: 20250122

REACTIONS (1)
  - Neutropenia [Recovered/Resolved]

NARRATIVE: CASE EVENT DATE: 20241212
